FAERS Safety Report 8943786 (Version 1)
Quarter: 2012Q4

REPORT INFORMATION
  Report Type: 
  Country: IT (occurrence: IT)
  Receive Date: 20121203
  Receipt Date: 20121203
  Transmission Date: 20130627
  Serious: Yes (Hospitalization)
  Sender: FDA-Public Use
  Company Number: IT-GLAXOSMITHKLINE-B0848657A

PATIENT
  Age: 23 Year
  Sex: Female

DRUGS (2)
  1. SEROXAT [Suspect]
     Indication: PRODUCT USED FOR UNKNOWN INDICATION
     Dosage: 300MG per day
     Route: 048
     Dates: start: 20121105, end: 20121105
  2. ALPRAZOLAM [Suspect]
     Indication: DEPRESSION
     Dosage: 10MG per day
     Route: 048
     Dates: start: 20121105, end: 20121105

REACTIONS (2)
  - Depression [Recovered/Resolved with Sequelae]
  - Drug abuse [Recovered/Resolved with Sequelae]
